FAERS Safety Report 12080340 (Version 1)
Quarter: 2016Q1

REPORT INFORMATION
  Report Type: Spontaneous
  Country: US (occurrence: None)
  Receive Date: 20160212
  Receipt Date: 20160212
  Transmission Date: 20160526
  Serious: Yes (Hospitalization)
  Sender: FDA-Public Use
  Company Number: None

PATIENT
  Age: 68 Year
  Sex: Male
  Weight: 80.9 kg

DRUGS (2)
  1. RIVAROXABAN [Suspect]
     Active Substance: RIVAROXABAN
     Indication: ATRIAL FIBRILLATION
     Route: 048
     Dates: start: 20150227
  2. NAPROXEN. [Suspect]
     Active Substance: NAPROXEN
     Route: 048

REACTIONS (7)
  - Anaemia [None]
  - Blood creatinine increased [None]
  - Blood urea increased [None]
  - Heart rate increased [None]
  - Chronic obstructive pulmonary disease [None]
  - Gastric haemorrhage [None]
  - General physical health deterioration [None]

NARRATIVE: CASE EVENT DATE: 20160124
